FAERS Safety Report 13086158 (Version 1)
Quarter: 2017Q1

REPORT INFORMATION
  Report Type: Spontaneous
  Country: IT (occurrence: IT)
  Receive Date: 20170104
  Receipt Date: 20170104
  Transmission Date: 20170428
  Serious: Yes (Death)
  Sender: FDA-Public Use
  Company Number: IT-MYLANLABS-2016M1059250

PATIENT

DRUGS (2)
  1. PIPERACILLIN/TAZOBACTAM [Suspect]
     Active Substance: PIPERACILLIN SODIUM\TAZOBACTAM SODIUM
     Indication: PRODUCT USED FOR UNKNOWN INDICATION
     Dosage: UNK
  2. MORPHINE [Concomitant]
     Active Substance: MORPHINE
     Indication: PRODUCT USED FOR UNKNOWN INDICATION
     Dosage: UNK

REACTIONS (11)
  - Gas gangrene [None]
  - Septic shock [None]
  - Drug ineffective [Fatal]
  - Rectal perforation [None]
  - Aortic aneurysm [None]
  - Loss of consciousness [None]
  - Tachycardia [None]
  - Neutropenia [None]
  - Renal failure [None]
  - Metabolic acidosis [None]
  - Hypotension [None]
